FAERS Safety Report 11211212 (Version 1)
Quarter: 2015Q2

REPORT INFORMATION
  Report Type: Spontaneous
  Country: US (occurrence: None)
  Receive Date: 20150619
  Receipt Date: 20150619
  Transmission Date: 20150821
  Serious: Yes (Hospitalization)
  Sender: FDA-Public Use
  Company Number: None

PATIENT
  Age: 66 Year
  Sex: Female
  Weight: 105.2 kg

DRUGS (13)
  1. APRESOLINE HYDROCHLORIDE [Concomitant]
     Active Substance: HYDRALAZINE HYDROCHLORIDE
  2. PROTONIX [Concomitant]
     Active Substance: PANTOPRAZOLE SODIUM
  3. COLACE [Concomitant]
     Active Substance: DOCUSATE SODIUM
  4. SYNTHROID [Concomitant]
     Active Substance: LEVOTHYROXINE SODIUM
  5. TOPROL XL [Concomitant]
     Active Substance: METOPROLOL SUCCINATE
  6. CLINDAMYCIN [Suspect]
     Active Substance: CLINDAMYCIN\CLINDAMYCIN PHOSPHATE
     Indication: ANTIBIOTIC THERAPY
     Dosage: 900 MG 98 X2 IV
     Route: 042
     Dates: start: 201104, end: 201204
  7. GLUGOTROL [Concomitant]
  8. SCLEROSOL [Suspect]
     Active Substance: TALC
     Indication: ASPIRATION PLEURAL CAVITY
     Route: 034
     Dates: start: 201104
  9. VITAMIN D3 [Concomitant]
     Active Substance: CHOLECALCIFEROL
  10. COZAAR [Concomitant]
     Active Substance: LOSARTAN POTASSIUM
  11. CYCLOSPORINE. [Concomitant]
     Active Substance: CYCLOSPORINE
  12. AMIODARONE [Concomitant]
     Active Substance: AMIODARONE
  13. PRADAXA [Concomitant]
     Active Substance: DABIGATRAN ETEXILATE MESYLATE

REACTIONS (2)
  - Drug hypersensitivity [None]
  - Respiratory failure [None]

NARRATIVE: CASE EVENT DATE: 20150411
